FAERS Safety Report 8843371 (Version 2)
Quarter: 2012Q4

REPORT INFORMATION
  Report Type: 
  Country: US (occurrence: US)
  Receive Date: 20121016
  Receipt Date: 20121022
  Transmission Date: 20130627
  Serious: Yes (Death)
  Sender: FDA-Public Use
  Company Number: US-ROCHE-1132088

PATIENT
  Sex: Male

DRUGS (1)
  1. XELODA [Suspect]
     Indication: PRODUCT USED FOR UNKNOWN INDICATION
     Route: 065

REACTIONS (8)
  - Pancreatic carcinoma [Fatal]
  - Pain [Unknown]
  - Ascites [Unknown]
  - Heart rate increased [Unknown]
  - Dizziness postural [Unknown]
  - Asthenia [Unknown]
  - Muscle atrophy [Unknown]
  - Decreased appetite [Unknown]
